FAERS Safety Report 4783473-4 (Version None)
Quarter: 2005Q3

REPORT INFORMATION
  Report Type: 
  Country: None (occurrence: None)
  Receive Date: 20050928
  Receipt Date: 20050928
  Transmission Date: 20060218
  Serious: Yes (Hospitalization)
  Sender: FDA-Public Use
  Company Number: None

PATIENT
  Age: 72 Year
  Sex: Male
  Weight: 70.3 kg

DRUGS (2)
  1. LITHIUM CARBONATE [Suspect]
     Dosage: 300MG, BID, BY MOUTH
     Route: 048
     Dates: start: 20040106, end: 20050307
  2. QUETIAPINE FUMARATE [Concomitant]

REACTIONS (2)
  - SINUS BRADYCARDIA [None]
  - TREMOR [None]
